FAERS Safety Report 25690503 (Version 1)
Quarter: 2025Q3

REPORT INFORMATION
  Report Type: Spontaneous
  Country: US (occurrence: None)
  Receive Date: 20250818
  Receipt Date: 20250818
  Transmission Date: 20251021
  Serious: Yes (Hospitalization)
  Sender: FDA-CTU
  Company Number: None

PATIENT
  Sex: Female

DRUGS (5)
  1. INLYTA [Suspect]
     Active Substance: AXITINIB
     Indication: Neoplasm malignant
     Dosage: FREQUENCY : DAILY;?
     Route: 048
  2. GLUCOS/CHOND TAB COMPLEX [Concomitant]
  3. IRON TAB 325 MG [Concomitant]
  4. MAGNESIUM TAB 250MG [Concomitant]
  5. PRESERVISION CAP AREDS 2 [Concomitant]

REACTIONS (1)
  - Diarrhoea [None]
